FAERS Safety Report 9742444 (Version 1)
Quarter: 2013Q4

REPORT INFORMATION
  Report Type: Spontaneous
  Country: US (occurrence: US)
  Receive Date: 20131210
  Receipt Date: 20131210
  Transmission Date: 20140711
  Serious: No
  Sender: FDA-Public Use
  Company Number: US-UPSHER-SMITH LABORATORIES, INC.-13003710

PATIENT
  Sex: Female

DRUGS (5)
  1. MIDODRINE HCL [Suspect]
     Indication: ORTHOSTATIC HYPOTENSION
     Dosage: 10 MG, 6 TIMES PER DAY
     Route: 048
     Dates: start: 201310, end: 201310
  2. MIDODRINE HCL [Suspect]
     Dosage: AT LEAST 80 MG, QD
     Route: 048
     Dates: start: 201310
  3. FLUDROCORTISONE [Concomitant]
     Indication: ORTHOSTATIC HYPOTENSION
     Dosage: UNK
  4. WELLBUTRIN [Concomitant]
     Dosage: UNK
  5. UNSPECIFIED BIRTH CONTROL PILL [Concomitant]
     Dosage: UNK

REACTIONS (1)
  - Drug effect incomplete [Not Recovered/Not Resolved]
